FAERS Safety Report 23876649 (Version 1)
Quarter: 2024Q2

REPORT INFORMATION
  Report Type: Spontaneous
  Country: US (occurrence: US)
  Receive Date: 20240521
  Receipt Date: 20240521
  Transmission Date: 20240716
  Serious: Yes (Other)
  Sender: FDA-Public Use
  Company Number: US-BRISTOL-MYERS SQUIBB COMPANY-2024-075713

PATIENT
  Age: 7 Year
  Sex: Female

DRUGS (3)
  1. ENASIDENIB [Suspect]
     Active Substance: ENASIDENIB
     Indication: 2-Hydroxyglutaric aciduria
     Route: 048
  2. ENASIDENIB [Suspect]
     Active Substance: ENASIDENIB
     Route: 048
  3. ENASIDENIB [Suspect]
     Active Substance: ENASIDENIB
     Route: 048

REACTIONS (2)
  - Drug-induced liver injury [Recovering/Resolving]
  - Off label use [Unknown]
